FAERS Safety Report 14099231 (Version 1)
Quarter: 2017Q4

REPORT INFORMATION
  Report Type: Spontaneous
  Country: US (occurrence: US)
  Receive Date: 20171017
  Receipt Date: 20171017
  Transmission Date: 20180321
  Serious: Yes (Other)
  Sender: FDA-Public Use
  Company Number: US-UPSHER-SMITH LABORATORIES, INC.-2017USL00235

PATIENT
  Sex: Male

DRUGS (1)
  1. QUDEXY XR [Suspect]
     Active Substance: TOPIRAMATE
     Indication: SEIZURE

REACTIONS (2)
  - Drug ineffective [Unknown]
  - Seizure [Unknown]
